FAERS Safety Report 6787988-9 (Version None)
Quarter: 2010Q2

REPORT INFORMATION
  Report Type: 
  Country: None (occurrence: None)
  Receive Date: 20100623
  Receipt Date: 20080115
  Transmission Date: 20101027
  Serious: No
  Sender: FDA-Public Use
  Company Number: US-PFIZER INC-2007106856

PATIENT
  Sex: Female
  Weight: 86 kg

DRUGS (12)
  1. AROMASIN [Suspect]
     Indication: BREAST CANCER
     Route: 048
     Dates: start: 20070315, end: 20071105
  2. LYRICA [Concomitant]
  3. ALTACE [Concomitant]
  4. HYDROCHLOROTHIAZIDE [Concomitant]
  5. FISH OIL [Concomitant]
  6. ACETYLSALICYLIC ACID [Concomitant]
  7. CALCIUM WITH VITAMIN D [Concomitant]
  8. GLUCOSAMINE [Concomitant]
  9. CHONDROITIN [Concomitant]
  10. MULTI-VITAMINS [Concomitant]
  11. VITAMIN B COMPLEX CAP [Concomitant]
  12. DIPHENHYDRAMINE HYDROCHLORIDE [Concomitant]

REACTIONS (2)
  - OEDEMA PERIPHERAL [None]
  - PAIN [None]
